FAERS Safety Report 19415707 (Version 1)
Quarter: 2021Q2

REPORT INFORMATION
  Report Type: Spontaneous
  Country: US (occurrence: US)
  Receive Date: 20210615
  Receipt Date: 20210615
  Transmission Date: 20210717
  Serious: Yes (Hospitalization, Other)
  Sender: FDA-Public Use
  Company Number: US-AUROBINDO-AUR-APL-2021-023839

PATIENT
  Age: 62 Year
  Sex: Female

DRUGS (1)
  1. IBUPROFEN. [Suspect]
     Active Substance: IBUPROFEN
     Indication: PLANTAR FASCIITIS
     Dosage: 600 MILLIGRAM, DAILY (FEW TIMES WEEKLY)
     Route: 065

REACTIONS (1)
  - Gastrointestinal disorder [Recovered/Resolved]
